FAERS Safety Report 7026973-9 (Version None)
Quarter: 2010Q4

REPORT INFORMATION
  Report Type: 
  Country: None (occurrence: None)
  Receive Date: 20101004
  Receipt Date: 20100928
  Transmission Date: 20110411
  Serious: Yes (Other)
  Sender: FDA-Public Use
  Company Number: US-SHIRE-ALL1-2010-04332

PATIENT
  Sex: Male
  Weight: 71.202 kg

DRUGS (14)
  1. FOSRENOL [Suspect]
     Indication: PRODUCT USED FOR UNKNOWN INDICATION
     Dosage: 500 MG, WITH MEALS
     Route: 048
     Dates: start: 20100714
  2. ISOSORBIDE [Concomitant]
     Indication: PRODUCT USED FOR UNKNOWN INDICATION
     Dosage: 60 MG, 2X/DAY:BID
     Route: 048
  3. PLAVIX [Concomitant]
     Indication: ANTICOAGULANT THERAPY
     Dosage: 75 MG, 1X/DAY:QD
     Route: 048
  4. ZOCOR [Concomitant]
     Indication: BLOOD CHOLESTEROL INCREASED
     Dosage: 10 MG, 1X/DAY:QD
     Route: 048
  5. PRILOSEC [Concomitant]
     Indication: HYPERCHLORHYDRIA
     Dosage: 20 MG, 2X/DAY:BID
     Route: 048
  6. SEROQUEL [Concomitant]
     Indication: ANXIETY
     Dosage: 25 MG, 2X/DAY:BID
     Route: 048
  7. ROCALTROL [Concomitant]
     Indication: BONE DISORDER
     Dosage: .5 MG, 2X/DAY:BID
     Route: 048
  8. ASPIRIN [Concomitant]
     Indication: PRODUCT USED FOR UNKNOWN INDICATION
     Dosage: 325 MG, 1X/DAY:QD
     Route: 048
  9. STOOL SOFTENER [Concomitant]
     Indication: FAECES HARD
     Dosage: UNK MG, 1X/DAY:QD
     Route: 048
  10. FOLIC ACID [Concomitant]
     Indication: VITAMIN SUPPLEMENTATION
     Dosage: 800 MG, 1X/DAY:QD
     Route: 048
  11. FOLIC ACID [Concomitant]
     Dates: start: 20100101
  12. FOLIC ACID [Concomitant]
     Dates: start: 20100101
  13. LOPRESSOR [Concomitant]
     Indication: PRODUCT USED FOR UNKNOWN INDICATION
     Dosage: UNK MG, 1X/DAY:QD
     Route: 048
     Dates: end: 20100101
  14. LOPRESSOR [Concomitant]
     Dosage: 50 MG, 4X/DAY:QID
     Route: 048
     Dates: start: 20100101

REACTIONS (4)
  - BLOOD PRESSURE FLUCTUATION [None]
  - NAUSEA [None]
  - OPTIC NEUROPATHY [None]
  - PNEUMONIA PRIMARY ATYPICAL [None]
